FAERS Safety Report 21798643 (Version 1)
Quarter: 2022Q4

REPORT INFORMATION
  Report Type: Spontaneous
  Country: FR (occurrence: FR)
  Receive Date: 20221230
  Receipt Date: 20221230
  Transmission Date: 20230113
  Serious: No
  Sender: FDA-Public Use
  Company Number: FR-ALKEM LABORATORIES LIMITED-FR-ALKEM-2022-14182

PATIENT
  Age: 57 Month
  Sex: Male
  Weight: 4.05 kg

DRUGS (6)
  1. SIROLIMUS [Suspect]
     Active Substance: SIROLIMUS
     Indication: Hyperinsulinism
     Dosage: UNK, INITIAL DOSE OF 0.5-1 MG/SQ.M OF BODY SURFACE AREA PER DAY), SYRUP IN A CONCENTRATION OF 1 MG/M
     Route: 065
  2. SIROLIMUS [Suspect]
     Active Substance: SIROLIMUS
     Dosage: 3.5 MILLIGRAM/SQ. METER, QD (MAXIMAL DOSAGE) TROUGH LEVEL 1.6 -10 MICROG/L
     Route: 065
  3. DIAZOXIDE [Concomitant]
     Active Substance: DIAZOXIDE
     Indication: Hyperinsulinism
     Dosage: 6 MILLIGRAM/KILOGRAM, QD
     Route: 048
  4. OCTREOTIDE [Concomitant]
     Active Substance: OCTREOTIDE
     Indication: Hyperinsulinism
     Dosage: 60 MICROGRAM/KILOGRAM, QD
     Route: 065
  5. OCTREOTIDE [Concomitant]
     Active Substance: OCTREOTIDE
     Dosage: UNK DOSE REDUCED
     Route: 065
  6. DEXTROSE [Concomitant]
     Active Substance: DEXTROSE
     Indication: Hyperinsulinism
     Dosage: 4.6 MILLIGRAM/KILOGRAM.MIN
     Route: 042

REACTIONS (3)
  - Blood triglycerides increased [Unknown]
  - Stomatitis [Unknown]
  - Off label use [Unknown]
